FAERS Safety Report 17191585 (Version 7)
Quarter: 2021Q1

REPORT INFORMATION
  Report Type: Spontaneous
  Country: US (occurrence: US)
  Receive Date: 20191223
  Receipt Date: 20210203
  Transmission Date: 20210419
  Serious: Yes (Other)
  Sender: FDA-Public Use
  Company Number: US-PFIZER INC-2019548708

PATIENT
  Age: 67 Year
  Sex: Female
  Weight: 111 kg

DRUGS (6)
  1. IBRANCE [Suspect]
     Active Substance: PALBOCICLIB
     Indication: BREAST CANCER METASTATIC
     Dosage: 125 MG, CYCLIC (ONCE DAILY FOR 21OUT OF 28 DAYS/ X 21 DAYS REST X 7 DAYS)
     Route: 048
     Dates: start: 20190805
  2. CALCIUM [Concomitant]
     Active Substance: CALCIUM
     Dosage: UNK
     Dates: start: 20191020, end: 20191223
  3. IBRANCE [Suspect]
     Active Substance: PALBOCICLIB
     Dosage: 125 MG, CYCLIC [125MG DAILY FOR 21 DAYS OF 28 DAY CYCLE]
     Route: 048
     Dates: start: 20210104
  4. LETROZOLE. [Concomitant]
     Active Substance: LETROZOLE
     Dosage: 2.5 MG, 1X/DAY [2.5 MG  OD (ONCE A DAY) PO (PER ORAL)]
     Route: 048
     Dates: start: 20190506
  5. ALEVE [Concomitant]
     Active Substance: NAPROXEN SODIUM
     Dosage: UNK
     Dates: start: 20190624
  6. XGEVA [Concomitant]
     Active Substance: DENOSUMAB
     Dosage: UNK
     Dates: start: 20191119

REACTIONS (3)
  - Hypoaesthesia [Not Recovered/Not Resolved]
  - Neuropathy peripheral [Unknown]
  - Skin exfoliation [Not Recovered/Not Resolved]

NARRATIVE: CASE EVENT DATE: 201909
